FAERS Safety Report 5242179-8 (Version None)
Quarter: 2007Q1

REPORT INFORMATION
  Report Type: 
  Country: None (occurrence: None)
  Receive Date: 20070213
  Receipt Date: 20070208
  Transmission Date: 20070707
  Serious: Yes (Other)
  Sender: FDA-Public Use
  Company Number: TCI2006A05795

PATIENT
  Age: 76 Year
  Sex: Male

DRUGS (3)
  1. ACTOS [Suspect]
     Indication: DIABETES MELLITUS
     Dosage: 15 MG (15 MG, 1 IN 1 D) PER ORAL
     Route: 048
     Dates: start: 20061204, end: 20061211
  2. BASEN TABLETS 0.2(VOGLIBOSE) [Concomitant]
  3. GLYBURIDE [Concomitant]

REACTIONS (3)
  - FEELING ABNORMAL [None]
  - PHOTOPSIA [None]
  - VISUAL ACUITY REDUCED [None]
